FAERS Safety Report 9057363 (Version 3)
Quarter: 2013Q1

REPORT INFORMATION
  Report Type: Spontaneous
  Country: BR (occurrence: BR)
  Receive Date: 20130204
  Receipt Date: 20130307
  Transmission Date: 20140127
  Serious: Yes (Life-Threatening, Hospitalization, Other)
  Sender: FDA-Public Use
  Company Number: PHHY2013BR009877

PATIENT
  Age: 59 Year
  Sex: Female

DRUGS (7)
  1. AMINOPHYLLINE SANDOZ [Suspect]
     Indication: BRONCHITIS
     Dosage: 0.3 G, UNK
     Route: 048
  2. AMINOPHYLLINE SANDOZ [Suspect]
     Indication: DYSPNOEA
     Dosage: 0.1 G, UNK
     Route: 048
  3. PREDNISONE [Suspect]
     Indication: DYSPNOEA
     Dosage: 3 DF, DAILY
  4. ALENIA [Suspect]
     Indication: BRONCHIECTASIS
     Dosage: 2 DF, DAILY
  5. ALENIA [Suspect]
     Indication: DYSPNOEA
  6. BEROTEC [Concomitant]
  7. ARTROLIVE [Concomitant]

REACTIONS (13)
  - Respiratory arrest [Recovered/Resolved]
  - Disorientation [Recovered/Resolved]
  - Syncope [Recovered/Resolved]
  - Amnesia [Recovered/Resolved]
  - Pneumonia [Recovered/Resolved]
  - Bronchiectasis [Not Recovered/Not Resolved]
  - Dyspnoea [Not Recovered/Not Resolved]
  - Pulmonary function test abnormal [Not Recovered/Not Resolved]
  - Cough [Not Recovered/Not Resolved]
  - Gastrooesophageal reflux disease [Recovered/Resolved]
  - Dyspepsia [Recovered/Resolved]
  - Pyrexia [Recovered/Resolved]
  - Nervousness [Recovered/Resolved]
